FAERS Safety Report 10149182 (Version 4)
Quarter: 2014Q2

REPORT INFORMATION
  Report Type: Spontaneous
  Country: NO (occurrence: NO)
  Receive Date: 20140502
  Receipt Date: 20140610
  Transmission Date: 20141212
  Serious: Yes (Death, Hospitalization, Other)
  Sender: FDA-Public Use
  Company Number: NO-ELI_LILLY_AND_COMPANY-NO201404008605

PATIENT
  Age: 46 Year
  Sex: Female

DRUGS (5)
  1. ZYPREXA [Suspect]
     Indication: ACUTE PSYCHOSIS
     Dosage: 10 MG, OTHER: TWO TIMES, FREQUENCY NOT PROVIDED
     Route: 048
     Dates: start: 20140105, end: 20140113
  2. ZYPREXA [Suspect]
     Dosage: 20 MG, UNKNOWN
     Route: 048
  3. ZYPREXA [Suspect]
     Indication: ACUTE PSYCHOSIS
     Dosage: UNK, OTHER: 2 ACUTE INJECTIONS WITH ZYPREXA IN THE BEGINNING TO STABILIZE THE PATIENT
     Route: 030
     Dates: start: 20140106, end: 20140113
  4. ZYPADHERA [Suspect]
     Indication: ACUTE PSYCHOSIS
     Dosage: 300 MG, UNKNOWN
     Route: 030
     Dates: start: 20140109
  5. ABILIFY [Concomitant]
     Indication: ACUTE PSYCHOSIS
     Dosage: 15 MG, UNKNOWN
     Route: 065

REACTIONS (12)
  - Cardiac failure congestive [Fatal]
  - Acute psychosis [Unknown]
  - Antipsychotic drug level increased [Not Recovered/Not Resolved]
  - Prescribed overdose [Unknown]
  - Ketonuria [Unknown]
  - Poisoning [Unknown]
  - Blood glucose increased [Unknown]
  - Dehydration [Unknown]
  - Urinary tract inflammation [Unknown]
  - Arteriosclerosis [Unknown]
  - Weight increased [Unknown]
  - Blood ketone body increased [Unknown]
